FAERS Safety Report 9169702 (Version 2)
Quarter: 2013Q2

REPORT INFORMATION
  Report Type: Spontaneous
  Country: US (occurrence: US)
  Receive Date: 20130318
  Receipt Date: 20130409
  Transmission Date: 20140414
  Serious: Yes (Death)
  Sender: FDA-Public Use
  Company Number: US-UCBSA-080777

PATIENT
  Age: 41 Year
  Sex: Male
  Weight: 83.01 kg

DRUGS (5)
  1. KEPPRA [Suspect]
     Indication: CONVULSION
     Route: 048
  2. KEPPRA [Suspect]
     Indication: CONVULSION
     Dosage: STRENGH : 500 MG
     Route: 048
     Dates: start: 20121022
  3. TEMOVATE [Concomitant]
     Indication: DERMATITIS CONTACT
     Route: 061
     Dates: start: 20121022
  4. SERTRALINE HCL [Concomitant]
     Indication: ANXIETY
     Route: 048
     Dates: start: 20121218
  5. ALPRAZOLAM [Concomitant]
     Indication: ANXIETY
     Route: 048
     Dates: start: 20120322

REACTIONS (3)
  - Hepatic failure [Fatal]
  - Pneumonia aspiration [Fatal]
  - Overdose [Fatal]
